FAERS Safety Report 24338638 (Version 1)
Quarter: 2024Q3

REPORT INFORMATION
  Report Type: Spontaneous
  Country: EG (occurrence: EG)
  Receive Date: 20240919
  Receipt Date: 20240919
  Transmission Date: 20241016
  Serious: Yes (Hospitalization, Other)
  Sender: HIKMA
  Company Number: EG-HIKMA PHARMACEUTICALS-EG-H14001-24-08535

PATIENT

DRUGS (6)
  1. DOCETAXEL [Suspect]
     Active Substance: DOCETAXEL\DOCETAXEL ANHYDROUS
     Indication: Prostate cancer metastatic
     Dosage: 120 MG EVERY 21 DAYS
     Route: 041
     Dates: start: 20240605
  2. DOCETAXEL [Suspect]
     Active Substance: DOCETAXEL\DOCETAXEL ANHYDROUS
     Dosage: 80 MG EVERY 21 DAYS
     Route: 041
     Dates: start: 20240605
  3. EMEX [DOMPERIDONE] [Concomitant]
     Indication: Chemotherapy side effect prophylaxis
     Dosage: UNK, EVERY 21 DAYS
     Route: 042
  4. DEXAMETHASONE [Concomitant]
     Active Substance: DEXAMETHASONE
     Indication: Chemotherapy side effect prophylaxis
     Dosage: UNK, EVERY 21 DAYS
     Route: 048
  5. PIRAFENE [Concomitant]
     Indication: Chemotherapy side effect prophylaxis
     Dosage: UNK, EVERY 21 DAYS
     Route: 042
  6. ZOMEGIPRAL [Concomitant]
     Indication: Chemotherapy side effect prophylaxis
     Dosage: UNK, EVERY 21 DAYS
     Route: 042

REACTIONS (2)
  - Hallucination [Recovered/Resolved]
  - Hypotension [Recovered/Resolved]

NARRATIVE: CASE EVENT DATE: 20240615
